FAERS Safety Report 6004823-7 (Version None)
Quarter: 2008Q4

REPORT INFORMATION
  Report Type: 
  Country: None (occurrence: None)
  Receive Date: 20081216
  Receipt Date: 20081206
  Transmission Date: 20090506
  Serious: Yes (Hospitalization)
  Sender: FDA-Public Use
  Company Number: US-AMGEN-QUU322623

PATIENT
  Sex: Female

DRUGS (2)
  1. ENBREL [Suspect]
     Indication: RHEUMATOID ARTHRITIS
     Route: 058
     Dates: start: 20021201
  2. METHOTREXATE [Concomitant]
     Dates: start: 20000101

REACTIONS (4)
  - ARTHRALGIA [None]
  - HYPOTENSION [None]
  - JOINT LOCK [None]
  - PALPITATIONS [None]
